FAERS Safety Report 17204296 (Version 2)
Quarter: 2020Q1

REPORT INFORMATION
  Report Type: Spontaneous
  Country: PL (occurrence: PL)
  Receive Date: 20191226
  Receipt Date: 20200103
  Transmission Date: 20200409
  Serious: Yes (Other)
  Sender: FDA-Public Use
  Company Number: PL-PFIZER INC-2019549748

PATIENT
  Age: 39 Year
  Sex: Female

DRUGS (3)
  1. SULFASALAZINE. [Suspect]
     Active Substance: SULFASALAZINE
     Indication: MULTICENTRIC RETICULOHISTIOCYTOSIS
     Dosage: 3 G, DAILY, IN DIVIDED DOSES
  2. CHLOROQUINE. [Concomitant]
     Active Substance: CHLOROQUINE
     Dosage: 250 MG, DAILY
  3. METHYLPREDNISOLONE. [Suspect]
     Active Substance: METHYLPREDNISOLONE
     Indication: MULTICENTRIC RETICULOHISTIOCYTOSIS
     Dosage: 4 MG, EVERY OTHER DAY

REACTIONS (3)
  - Off label use [Unknown]
  - Product use in unapproved indication [Unknown]
  - Drug ineffective [Unknown]
